FAERS Safety Report 20516649 (Version 2)
Quarter: 2022Q2

REPORT INFORMATION
  Report Type: Report from Study
  Country: IT (occurrence: IT)
  Receive Date: 20220225
  Receipt Date: 20220531
  Transmission Date: 20220721
  Serious: Yes (Other)
  Sender: FDA-Public Use
  Company Number: IT-AMGEN-ITANI2022031714

PATIENT
  Age: 66 Year
  Sex: Female

DRUGS (2)
  1. AMG-510 [Suspect]
     Active Substance: AMG-510
     Indication: Non-small cell lung cancer
     Dosage: 960 MILLIGRAM, QD
     Route: 065
     Dates: start: 20210527
  2. AMG-510 [Suspect]
     Active Substance: AMG-510
     Dosage: 480 MILLIGRAM, QD
     Route: 065
     Dates: end: 20220210

REACTIONS (1)
  - Non-small cell lung cancer [Unknown]

NARRATIVE: CASE EVENT DATE: 20220206
